FAERS Safety Report 11542980 (Version 1)
Quarter: 2015Q3

REPORT INFORMATION
  Report Type: Spontaneous
  Country: JP (occurrence: JP)
  Receive Date: 20150923
  Receipt Date: 20150923
  Transmission Date: 20151125
  Serious: Yes (Death)
  Sender: FDA-Public Use
  Company Number: JP-SA-2015SA115953

PATIENT
  Age: 77 Year
  Sex: Male
  Weight: 40 kg

DRUGS (4)
  1. FLUITRAN [Concomitant]
     Active Substance: TRICHLORMETHIAZIDE
     Route: 048
     Dates: end: 20150803
  2. FAMOTIDINE. [Concomitant]
     Active Substance: FAMOTIDINE
     Route: 048
     Dates: end: 20150724
  3. TOPHARMIN [Concomitant]
     Route: 048
     Dates: end: 20150811
  4. PLAVIX [Suspect]
     Active Substance: CLOPIDOGREL BISULFATE
     Indication: CEREBRAL INFARCTION
     Route: 048
     Dates: start: 20150424, end: 20150803

REACTIONS (2)
  - Interstitial lung disease [Fatal]
  - Dyspnoea [Fatal]

NARRATIVE: CASE EVENT DATE: 20150710
